FAERS Safety Report 6851464-5 (Version None)
Quarter: 2010Q3

REPORT INFORMATION
  Report Type: 
  Country: None (occurrence: None)
  Receive Date: 20100717
  Receipt Date: 20080116
  Transmission Date: 20110219
  Serious: No
  Sender: FDA-Public Use
  Company Number: US-PFIZER INC-2008007495

PATIENT
  Sex: Male
  Weight: 90.9 kg

DRUGS (3)
  1. CHANTIX [Suspect]
     Indication: SMOKING CESSATION THERAPY
     Route: 048
     Dates: start: 20080101, end: 20080108
  2. PRANDIN [Concomitant]
  3. METFORMIN HCL [Concomitant]

REACTIONS (3)
  - FEELING ABNORMAL [None]
  - NERVOUSNESS [None]
  - TREMOR [None]
